FAERS Safety Report 17651877 (Version 1)
Quarter: 2020Q2

REPORT INFORMATION
  Report Type: Report from Study
  Country: US (occurrence: US)
  Receive Date: 20200409
  Receipt Date: 20200409
  Transmission Date: 20200713
  Serious: Yes (Other)
  Sender: FDA-Public Use
  Company Number: US-ASTELLAS-2020US012359

PATIENT
  Age: 58 Year
  Sex: Female

DRUGS (1)
  1. ASG-22CE [Suspect]
     Active Substance: ENFORTUMAB VEDOTIN
     Indication: TRANSITIONAL CELL CARCINOMA
     Route: 065

REACTIONS (1)
  - Neutropenia [Unknown]

NARRATIVE: CASE EVENT DATE: 202002
